FAERS Safety Report 5215278-4 (Version None)
Quarter: 2006Q4

REPORT INFORMATION
  Report Type: 
  Country: None (occurrence: None)
  Receive Date: 20061122
  Receipt Date: 20051003
  Transmission Date: 20070319
  Serious: Yes (Other)
  Sender: FDA-Public Use
  Company Number: HQWYE847305OCT05

PATIENT
  Age: 56 Year
  Sex: Female
  Weight: 56.75 kg

DRUGS (1)
  1. PREMARIN [Suspect]
     Indication: VULVOVAGINAL DRYNESS
     Dosage: 1 G 1X PER 2 DAY, VAGINAL
     Route: 067
     Dates: start: 20020101

REACTIONS (1)
  - FUNGAL INFECTION [None]
